FAERS Safety Report 24741550 (Version 3)
Quarter: 2024Q4

REPORT INFORMATION
  Report Type: Spontaneous
  Country: US (occurrence: US)
  Receive Date: 20241217
  Receipt Date: 20241231
  Transmission Date: 20250114
  Serious: Yes (Hospitalization, Other)
  Sender: AUROBINDO
  Company Number: US-AUROBINDO-AUR-APL-2024-060533

PATIENT
  Age: 75 Year
  Sex: Female
  Weight: 74.84 kg

DRUGS (5)
  1. AMOXICILLIN\CLAVULANATE POTASSIUM [Suspect]
     Active Substance: AMOXICILLIN\CLAVULANATE POTASSIUM
     Indication: Urinary tract infection
     Dosage: UNK ( AMOX-CLAV 875-125 MG TABLETS TO BE TAKEN BID)
     Route: 048
     Dates: start: 20230905, end: 20230908
  2. AMOXICILLIN\CLAVULANATE POTASSIUM [Suspect]
     Active Substance: AMOXICILLIN\CLAVULANATE POTASSIUM
     Indication: Diverticulitis
     Dosage: UNK
     Route: 048
     Dates: start: 202408
  3. CALCIUM [Concomitant]
     Active Substance: CALCIUM
     Indication: Osteoporosis
     Dosage: 600 MILLIGRAM, TWO TIMES A DAY
     Route: 065
     Dates: start: 2013
  4. VITAMIN D [Concomitant]
     Active Substance: VITAMIN D NOS
     Indication: Product used for unknown indication
     Dosage: 125 MILLIGRAM, TWO TIMES A DAY
     Route: 065
     Dates: start: 2013
  5. CELEBREX [Concomitant]
     Active Substance: CELECOXIB
     Indication: Pain
     Dosage: 200 MILLIGRAM, ONCE A DAY
     Route: 065
     Dates: start: 2013

REACTIONS (8)
  - Intestinal perforation [Unknown]
  - Sepsis [Unknown]
  - Urinary tract infection [Unknown]
  - Gait inability [Unknown]
  - Therapeutic product effect decreased [Unknown]
  - Treatment noncompliance [Unknown]
  - Drug ineffective [Unknown]
  - Product quality issue [Unknown]
